FAERS Safety Report 22154525 (Version 1)
Quarter: 2023Q1

REPORT INFORMATION
  Report Type: Report from Study
  Country: US (occurrence: None)
  Receive Date: 20230330
  Receipt Date: 20230330
  Transmission Date: 20230418
  Serious: Yes (Hospitalization)
  Sender: FDA-Public Use
  Company Number: 2023A070862

PATIENT
  Sex: Male

DRUGS (1)
  1. LYNPARZA [Suspect]
     Active Substance: OLAPARIB
     Indication: Colon cancer
     Dosage: 1 TABLET EVERY MORNING AND 2 TABLETS IN THE EVENING
     Route: 048
     Dates: start: 20230131

REACTIONS (5)
  - Muscle twitching [Unknown]
  - Tremor [Unknown]
  - Muscular weakness [Unknown]
  - Fall [Unknown]
  - Off label use [Unknown]
